FAERS Safety Report 10347747 (Version 1)
Quarter: 2014Q3

REPORT INFORMATION
  Report Type: Spontaneous
  Country: US (occurrence: US)
  Receive Date: 20140729
  Receipt Date: 20140729
  Transmission Date: 20150326
  Serious: Yes (Other)
  Sender: FDA-Public Use
  Company Number: US-BAXTER-2014BAX041930

PATIENT
  Sex: Female

DRUGS (1)
  1. DIANEAL LOW CALCIUM PERITONEAL DIALYSIS SOLUTION WITH DEXTROSE [Suspect]
     Active Substance: CALCIUM CHLORIDE\DEXTROSE\MAGNESIUM CHLORIDE\SODIUM CHLORIDE\SODIUM LACTATE
     Indication: PERITONEAL DIALYSIS
     Route: 033

REACTIONS (4)
  - Nausea [Recovering/Resolving]
  - Swelling [Recovering/Resolving]
  - Atrial fibrillation [Recovering/Resolving]
  - Malaise [Recovering/Resolving]

NARRATIVE: CASE EVENT DATE: 201404
